FAERS Safety Report 8774247 (Version 4)
Quarter: 2014Q2

REPORT INFORMATION
  Report Type: Report from Study
  Country: JP (occurrence: JP)
  Receive Date: 20120910
  Receipt Date: 20140325
  Transmission Date: 20141212
  Serious: Yes (Other)
  Sender: FDA-Public Use
  Company Number: JP-CELGENEUS-087-C5013-12083293

PATIENT
  Age: 61 Year
  Sex: Male
  Weight: 68.4 kg

DRUGS (27)
  1. CC-5013 [Suspect]
     Indication: ADULT T-CELL LYMPHOMA/LEUKAEMIA
     Dosage: 25 MILLIGRAM
     Route: 048
     Dates: start: 20120627, end: 20120820
  2. MOGAMULIZUMAB [Suspect]
     Indication: PRODUCT USED FOR UNKNOWN INDICATION
     Route: 065
     Dates: start: 20120823
  3. ETOPOSIDE [Suspect]
     Indication: PRODUCT USED FOR UNKNOWN INDICATION
     Dosage: 179.5 MILLIGRAM
     Route: 065
     Dates: start: 20120824
  4. ETOPOSIDE [Suspect]
     Dosage: 179.5 MILLIGRAM
     Route: 065
     Dates: start: 20120825
  5. ETOPOSIDE [Suspect]
     Dosage: 179.5 MILLIGRAM
     Route: 065
     Dates: start: 20120826
  6. CYCLOPHOSPHAMIDE HYDRATE [Suspect]
     Indication: PRODUCT USED FOR UNKNOWN INDICATION
     Dosage: 2154 MILLIGRAM
     Route: 065
     Dates: start: 20120824
  7. CYTARABINE [Suspect]
     Indication: PRODUCT USED FOR UNKNOWN INDICATION
     Dosage: 3590 MILLIGRAM
     Route: 065
     Dates: start: 20120825
  8. CYTARABINE [Suspect]
     Dosage: 3590 MILLIGRAM
     Route: 065
     Dates: start: 20120826
  9. DECADRON [Concomitant]
     Indication: PRODUCT USED FOR UNKNOWN INDICATION
     Dosage: 40 MILLIGRAM
     Route: 065
     Dates: start: 20120824
  10. DECADRON [Concomitant]
     Dosage: 40 MILLIGRAM
     Route: 065
     Dates: start: 20120825
  11. DECADRON [Concomitant]
     Dosage: 40 MILLIGRAM
     Route: 065
     Dates: start: 20120826
  12. GRANULOCYTE COLONY-STIMULATING FACTOR NOS [Concomitant]
     Indication: PRODUCT USED FOR UNKNOWN INDICATION
     Route: 065
     Dates: start: 20120828
  13. CLARITHROMYCIN [Concomitant]
     Indication: PRODUCT USED FOR UNKNOWN INDICATION
     Dosage: 800 MILLIGRAM
     Route: 048
     Dates: start: 2010
  14. FUDOSTEINE [Concomitant]
     Indication: PRODUCT USED FOR UNKNOWN INDICATION
     Dosage: 3600 MILLIGRAM
     Route: 048
     Dates: start: 20100713
  15. SULFAMETHOXAZOLE [Concomitant]
     Indication: INFECTION PROPHYLAXIS
     Dosage: 1 TABLET
     Route: 048
     Dates: start: 20100726
  16. ACETAMINOPHEN [Concomitant]
     Indication: PERIPHERAL SENSORY NEUROPATHY
     Dosage: 1200 MILLIGRAM
     Route: 048
     Dates: start: 20120130
  17. PREGABALIN [Concomitant]
     Indication: PERIPHERAL SENSORY NEUROPATHY
     Dosage: 300 MILLIGRAM
     Route: 048
     Dates: start: 20120227
  18. LANSOPRAZOLE [Concomitant]
     Indication: GASTRITIS PROPHYLAXIS
     Dosage: 30 MILLIGRAM
     Route: 048
     Dates: start: 20120208
  19. ITRACONAZOLE [Concomitant]
     Indication: INFECTION PROPHYLAXIS
     Dosage: 200 MILLIGRAM
     Route: 048
     Dates: start: 20120627
  20. POVIDONE-IODINE [Concomitant]
     Indication: INFECTION PROPHYLAXIS
     Dosage: 200 MILLIGRAM
     Route: 061
     Dates: start: 20120626
  21. MECOBALAMIN [Concomitant]
     Indication: PERIPHERAL SENSORY NEUROPATHY
     Dosage: 4500 MICROGRAM
     Route: 048
     Dates: start: 20120806
  22. POLAPREZINC [Concomitant]
     Indication: DYSGEUSIA
     Dosage: 300 MICROGRAM
     Route: 048
     Dates: start: 20120806
  23. LEVOFLOXACIN HYDRATE [Concomitant]
     Indication: INFECTION PROPHYLAXIS
     Dosage: 500 MICROGRAM
     Route: 048
     Dates: start: 20120822
  24. ACICLOVIR [Concomitant]
     Indication: INFECTION PROPHYLAXIS
     Dosage: 200 MICROGRAM
     Route: 048
     Dates: start: 20120824
  25. FLUOROMETHOLONE [Concomitant]
     Indication: CONJUNCTIVITIS
     Route: 047
     Dates: start: 20120824
  26. PURIFIED SODIUM HYALURONATE [Concomitant]
     Indication: CONJUNCTIVITIS
     Route: 047
     Dates: start: 20120824
  27. LENOGRASTIM [Concomitant]
     Indication: WHITE BLOOD CELL COUNT DECREASED
     Dosage: 100 MICROGRAM/KILOGRAM
     Route: 058
     Dates: start: 20120828

REACTIONS (2)
  - White blood cell count decreased [Recovered/Resolved]
  - Platelet count decreased [Recovering/Resolving]
